FAERS Safety Report 12739669 (Version 2)
Quarter: 2016Q3

REPORT INFORMATION
  Report Type: Report from Study
  Country: GB (occurrence: GB)
  Receive Date: 20160913
  Receipt Date: 20160916
  Transmission Date: 20161109
  Serious: Yes (Hospitalization)
  Sender: FDA-Public Use
  Company Number: GB-BRISTOL-MYERS SQUIBB COMPANY-BMS-2016-070096

PATIENT
  Age: 74 Year
  Sex: Female
  Weight: 74.5 kg

DRUGS (13)
  1. NIVOLUMAB [Suspect]
     Active Substance: NIVOLUMAB
     Dosage: 220 MG, Q2WK
     Route: 042
     Dates: start: 20160303, end: 20160303
  2. NIVOLUMAB [Suspect]
     Active Substance: NIVOLUMAB
     Dosage: 200 MG, Q2WK
     Route: 042
     Dates: start: 20160707, end: 20160707
  3. NIVOLUMAB [Suspect]
     Active Substance: NIVOLUMAB
     Dosage: 200 MG, Q2WK
     Route: 042
     Dates: start: 20160721, end: 20160721
  4. NIVOLUMAB [Suspect]
     Active Substance: NIVOLUMAB
     Dosage: 220 MG, Q2WK
     Route: 042
     Dates: start: 20160428, end: 20160428
  5. NIVOLUMAB [Suspect]
     Active Substance: NIVOLUMAB
     Dosage: 220 MG, Q2WK
     Route: 042
     Dates: start: 20160331, end: 20160331
  6. NIVOLUMAB [Suspect]
     Active Substance: NIVOLUMAB
     Dosage: 220 MG, Q2WK
     Route: 042
     Dates: start: 20160512, end: 20160512
  7. NIVOLUMAB [Suspect]
     Active Substance: NIVOLUMAB
     Dosage: 200 MG, Q2WK
     Route: 042
     Dates: start: 20160623, end: 20160623
  8. NIVOLUMAB [Suspect]
     Active Substance: NIVOLUMAB
     Dosage: 220 MG, Q2WK
     Route: 042
     Dates: start: 20160218, end: 20160218
  9. NIVOLUMAB [Suspect]
     Active Substance: NIVOLUMAB
     Dosage: 220 MG, Q2WK
     Route: 042
     Dates: start: 20160526, end: 20160526
  10. NIVOLUMAB [Suspect]
     Active Substance: NIVOLUMAB
     Dosage: 220 MG, Q2WK
     Route: 042
     Dates: start: 20160609, end: 20160609
  11. NIVOLUMAB [Suspect]
     Active Substance: NIVOLUMAB
     Dosage: 220 MG, Q2WK
     Route: 042
     Dates: start: 20160317, end: 20160317
  12. NIVOLUMAB [Suspect]
     Active Substance: NIVOLUMAB
     Indication: NON-SMALL CELL LUNG CANCER
     Dosage: 220 MG, Q2WK
     Route: 042
     Dates: start: 20160204, end: 20160204
  13. NIVOLUMAB [Suspect]
     Active Substance: NIVOLUMAB
     Dosage: 220 MG, Q2WK
     Route: 042
     Dates: start: 20160414, end: 20160414

REACTIONS (1)
  - Hypotension [Recovered/Resolved]

NARRATIVE: CASE EVENT DATE: 20160818
